FAERS Safety Report 8476927 (Version 2)
Quarter: 2013Q1

REPORT INFORMATION
  Report Type: Report from Study
  Country: US (occurrence: US)
  Receive Date: 20120326
  Receipt Date: 20130122
  Transmission Date: 20140127
  Serious: Yes (Hospitalization, Other)
  Sender: FDA-Public Use
  Company Number: US-MILLENNIUM PHARMACEUTICALS, INC.-2012-01930

PATIENT
  Age: 55 Year
  Sex: Male
  Weight: 73.74 kg

DRUGS (4)
  1. VELCADE [Suspect]
     Indication: AMYLOIDOSIS
     Dosage: 1.3 MG/M2, CYCLIC
     Route: 042
     Dates: start: 20100427
  2. VELCADE [Suspect]
     Dosage: 1.0 MG/M2, CYCLIC
     Route: 042
     Dates: start: 20100611, end: 20100704
  3. DEXAMETHASONE [Suspect]
     Indication: AMYLOIDOSIS
     Dosage: 20 MG, CYCLIC
  4. MELPHALAN [Suspect]
     Indication: AMYLOIDOSIS

REACTIONS (5)
  - Post transplant lymphoproliferative disorder [Recovered/Resolved]
  - Graft versus host disease [Recovering/Resolving]
  - Pyrexia [None]
  - Chills [None]
  - Hypotension [None]
